FAERS Safety Report 8430283-2 (Version None)
Quarter: 2012Q2

REPORT INFORMATION
  Report Type: 
  Country: None (occurrence: None)
  Receive Date: 20120612
  Receipt Date: 20120530
  Transmission Date: 20120825
  Serious: Yes (Death)
  Sender: FDA-Public Use
  Company Number: US-ELI_LILLY_AND_COMPANY-US201205002245

PATIENT
  Age: 24 Year
  Sex: Male

DRUGS (5)
  1. STRATTERA [Suspect]
     Indication: ATTENTION DEFICIT/HYPERACTIVITY DISORDER
     Dosage: 25 MG, UNKNOWN
     Dates: start: 20111202
  2. STRATTERA [Suspect]
     Dosage: 80 MG, QD
     Dates: start: 20120201
  3. STRATTERA [Suspect]
     Dosage: 60 MG, UNKNOWN
  4. STRATTERA [Suspect]
     Dosage: 40 MG, UNKNOWN
  5. KLONOPIN [Concomitant]
     Indication: ANXIETY
     Dosage: UNK, PRN

REACTIONS (6)
  - ANXIETY [None]
  - ABNORMAL BEHAVIOUR [None]
  - DISINHIBITION [None]
  - INSOMNIA [None]
  - DRUG EFFECT DECREASED [None]
  - COMPLETED SUICIDE [None]
